FAERS Safety Report 7354012-9 (Version None)
Quarter: 2011Q1

REPORT INFORMATION
  Report Type: 
  Country: None (occurrence: None)
  Receive Date: 20110315
  Receipt Date: 20110308
  Transmission Date: 20110831
  Serious: Yes (Death)
  Sender: FDA-Public Use
  Company Number: PHHY2011IN19914

PATIENT
  Age: 75 Year
  Sex: Female

DRUGS (1)
  1. ASUNRA [Suspect]
     Dosage: 400 MG, DAILY
     Route: 048

REACTIONS (3)
  - TRANSPLANT FAILURE [None]
  - HAEMOGLOBIN DECREASED [None]
  - PLATELET COUNT DECREASED [None]
